FAERS Safety Report 4866889-7 (Version None)
Quarter: 2005Q4

REPORT INFORMATION
  Report Type: 
  Country: None (occurrence: None)
  Receive Date: 20051222
  Receipt Date: 20051213
  Transmission Date: 20060501
  Serious: Yes (Other)
  Sender: FDA-Public Use
  Company Number: 2004229678DE

PATIENT
  Age: 55 Year
  Sex: Male
  Weight: 115 kg

DRUGS (1)
  1. GENOTROPIN (SOMATOPRIN) [Suspect]
     Indication: HYPOPITUITARISM
     Dosage: 0.4 MG (0.4 MG, 1 IN 1 D), SUBCUTANEOUS
     Route: 058
     Dates: start: 20000822

REACTIONS (2)
  - DISEASE RECURRENCE [None]
  - PITUITARY TUMOUR [None]
